FAERS Safety Report 22590505 (Version 2)
Quarter: 2023Q4

REPORT INFORMATION
  Report Type: Spontaneous
  Country: JP (occurrence: JP)
  Receive Date: 20230612
  Receipt Date: 20231204
  Transmission Date: 20240109
  Serious: Yes (Hospitalization, Other)
  Sender: FDA-Public Use
  Company Number: JP-MSD-M2023-11341

PATIENT
  Age: 46 Year
  Sex: Female

DRUGS (3)
  1. KEYTRUDA [Suspect]
     Active Substance: PEMBROLIZUMAB
     Indication: Renal cell carcinoma stage IV
     Dosage: 200 MILLIGRAM, Q3W
     Route: 041
     Dates: start: 20221205
  2. LENVATINIB MESYLATE [Suspect]
     Active Substance: LENVATINIB MESYLATE
     Indication: Renal cell carcinoma stage IV
     Dosage: 20 MILLIGRAM
     Route: 048
     Dates: start: 20221205, end: 2023
  3. LENVATINIB MESYLATE [Suspect]
     Active Substance: LENVATINIB MESYLATE
     Dosage: UNK
     Route: 048
     Dates: start: 2023, end: 202307

REACTIONS (10)
  - Diabetes mellitus [Unknown]
  - Pancreatitis [Unknown]
  - Hypothyroidism [Recovered/Resolved]
  - Hypothyroidism [Unknown]
  - Increased appetite [Unknown]
  - Obesity [Unknown]
  - Palmar-plantar erythrodysaesthesia syndrome [Unknown]
  - Taste disorder [Unknown]
  - Abdominal pain [Unknown]
  - Abdominal pain [Unknown]

NARRATIVE: CASE EVENT DATE: 20230101
